FAERS Safety Report 25236091 (Version 2)
Quarter: 2025Q3

REPORT INFORMATION
  Report Type: Spontaneous
  Country: US (occurrence: US)
  Receive Date: 20250424
  Receipt Date: 20250816
  Transmission Date: 20251021
  Serious: No
  Sender: ALEXION PHARMACEUTICALS
  Company Number: US-AstraZeneca-CH-00731209AP

PATIENT
  Sex: Male

DRUGS (1)
  1. BREZTRI [Suspect]
     Active Substance: BUDESONIDE\FORMOTEROL\GLYCOPYRROLATE
     Dosage: 160 MICROGRAM, BID

REACTIONS (9)
  - Product dose omission issue [Unknown]
  - Overdose [Unknown]
  - Incorrect dose administered by product [Unknown]
  - Expired device used [Unknown]
  - Unevaluable event [Unknown]
  - Therapy interrupted [Unknown]
  - Product label confusion [Unknown]
  - Device issue [Unknown]
  - Taste disorder [Unknown]
